FAERS Safety Report 9218169 (Version 2)
Quarter: 2013Q2

REPORT INFORMATION
  Report Type: Report from Study
  Country: DE (occurrence: DE)
  Receive Date: 20130408
  Receipt Date: 20130410
  Transmission Date: 20140414
  Serious: Yes (Hospitalization, Other)
  Sender: FDA-Public Use
  Company Number: DE-009507513-1303DEU005186

PATIENT
  Age: 57 Year
  Sex: Male

DRUGS (11)
  1. BOCEPREVIR [Suspect]
     Indication: HEPATITIS C
     Dosage: UNK
     Route: 048
     Dates: start: 20130312
  2. BOCEPREVIR [Suspect]
     Dosage: STRENGTH = 200 MG
     Route: 048
     Dates: end: 20130312
  3. BOCEPREVIR [Suspect]
     Dosage: 800 MG, UNK
     Dates: start: 20130202
  4. REBETOL [Suspect]
     Indication: HEPATITIS C
     Dosage: 800 MG,QD
     Dates: start: 20130108, end: 20130225
  5. REBETOL [Suspect]
     Dosage: 600 MG, QD
     Dates: start: 20130226, end: 20130313
  6. REBETOL [Suspect]
     Dosage: 400 MG, QD
     Dates: start: 20130314, end: 20130328
  7. REBETOL [Suspect]
     Dosage: 200 MG, QD
     Dates: start: 20130329
  8. INTERFERON ALFA [Suspect]
     Indication: HEPATITIS C
     Dosage: UNK
  9. PEGASYS [Suspect]
     Dosage: 180 MICROGRAM, QW
     Dates: start: 20130108
  10. ALLOPURINOL [Concomitant]
     Dosage: 100 MG, UNK
     Dates: start: 2011
  11. RAMIPRIL [Concomitant]
     Dosage: 10 MG, UNK
     Dates: start: 2011

REACTIONS (10)
  - Hyperchromic anaemia [Recovering/Resolving]
  - Hypertension [Unknown]
  - Hyperuricaemia [Unknown]
  - Splenectomy [Unknown]
  - Protein total decreased [Unknown]
  - Transfusion [Unknown]
  - Haemochromatosis [Unknown]
  - Asthenia [Unknown]
  - Anaemia [Recovering/Resolving]
  - Anaemia [Recovered/Resolved]
